FAERS Safety Report 8615634-8 (Version None)
Quarter: 2012Q3

REPORT INFORMATION
  Report Type: 
  Country: None (occurrence: None)
  Receive Date: 20120823
  Receipt Date: 20120814
  Transmission Date: 20120928
  Serious: Yes (Hospitalization, Disabling, Other)
  Sender: FDA-Public Use
  Company Number: US-009507513-1206USA04712

PATIENT

DRUGS (7)
  1. XANAX [Concomitant]
     Indication: DEPRESSION
  2. SINGULAIR [Concomitant]
     Indication: RESPIRATORY TRACT CONGESTION
  3. FOSAMAX [Suspect]
     Indication: OSTEOPOROSIS
     Dosage: UNK
     Route: 048
     Dates: start: 20030101, end: 20070101
  4. VITAMIN D [Concomitant]
     Indication: VITAMIN D DEFICIENCY
     Dosage: UNK
     Dates: start: 20020101
  5. XANAX [Concomitant]
     Indication: ANXIETY
  6. SINGULAIR [Concomitant]
     Indication: HYPERSENSITIVITY
  7. CALCIUM (UNSPECIFIED) [Concomitant]
     Indication: VITAMIN D DEFICIENCY
     Dosage: UNK
     Dates: start: 20020101

REACTIONS (14)
  - FEMUR FRACTURE [None]
  - STRESS FRACTURE [None]
  - GINGIVAL INFECTION [None]
  - SURGERY [None]
  - ENDODONTIC PROCEDURE [None]
  - ORAL SURGERY [None]
  - FALL [None]
  - ANXIETY [None]
  - LOW TURNOVER OSTEOPATHY [None]
  - INTRAMEDULLARY ROD INSERTION [None]
  - WRIST FRACTURE [None]
  - GASTROOESOPHAGEAL REFLUX DISEASE [None]
  - OSTEOPOROSIS [None]
  - DEVICE FAILURE [None]
